FAERS Safety Report 21158579 (Version 1)
Quarter: 2022Q3

REPORT INFORMATION
  Report Type: Report from Study
  Country: US (occurrence: US)
  Receive Date: 20220801
  Receipt Date: 20220801
  Transmission Date: 20221027
  Serious: Yes (Other)
  Sender: FDA-Public Use
  Company Number: US-BAXTER-2015BAX007850

PATIENT
  Sex: Female

DRUGS (4)
  1. HUMAN IMMUNOGLOBULIN G [Suspect]
     Active Substance: HUMAN IMMUNOGLOBULIN G
     Indication: Product used for unknown indication
     Dosage: UNK UNK, Q2WEEKS
     Route: 058
  2. GAMMAGARD LIQUID [Suspect]
     Active Substance: HUMAN IMMUNOGLOBULIN G
     Indication: Immunodeficiency common variable
     Dosage: 55 GRAM, 1/WEEK
     Route: 042
     Dates: start: 2010
  3. GAMMAGARD LIQUID [Suspect]
     Active Substance: HUMAN IMMUNOGLOBULIN G
     Dosage: 55 GRAM, 1/WEEK
     Route: 042
     Dates: start: 2015
  4. GAMMAGARD [Concomitant]
     Active Substance: HUMAN IMMUNOGLOBULIN G
     Indication: Immunodeficiency common variable
     Dosage: 50 GRAM, 1/WEEK
     Route: 058
     Dates: end: 201501

REACTIONS (8)
  - COVID-19 [Recovering/Resolving]
  - Pain [Unknown]
  - Gait disturbance [Unknown]
  - Mobility decreased [Unknown]
  - Loss of personal independence in daily activities [Unknown]
  - Fatigue [Unknown]
  - Infusion site bruising [Unknown]
  - Impaired work ability [Unknown]
